FAERS Safety Report 5512320-8 (Version None)
Quarter: 2007Q4

REPORT INFORMATION
  Report Type: 
  Country: None (occurrence: None)
  Receive Date: 20071112
  Receipt Date: 20071025
  Transmission Date: 20080405
  Serious: No
  Sender: FDA-Public Use
  Company Number: A0689793A

PATIENT
  Age: 6 Year
  Sex: Male

DRUGS (2)
  1. VERAMYST [Suspect]
     Dosage: 1SPR PER DAY
     Route: 045
     Dates: start: 20071019
  2. CEFTIN [Concomitant]

REACTIONS (2)
  - DRY EYE [None]
  - OCULAR HYPERAEMIA [None]
